FAERS Safety Report 8206466-3 (Version None)
Quarter: 2012Q1

REPORT INFORMATION
  Report Type: 
  Country: None (occurrence: None)
  Receive Date: 20120313
  Receipt Date: 20120306
  Transmission Date: 20120608
  Serious: Yes (Other)
  Sender: FDA-Public Use
  Company Number: US-FRI-1000024225

PATIENT
  Sex: Male

DRUGS (1)
  1. VIIBRYD [Suspect]
     Indication: MAJOR DEPRESSION
     Dosage: 10 MG
     Route: 048
     Dates: start: 20110914, end: 20110917

REACTIONS (1)
  - GRAND MAL CONVULSION [None]
